FAERS Safety Report 9636455 (Version 1)
Quarter: 2013Q4

REPORT INFORMATION
  Report Type: Spontaneous
  Country: US (occurrence: US)
  Receive Date: 20131021
  Receipt Date: 20131021
  Transmission Date: 20140711
  Serious: Yes (Death, Hospitalization)
  Sender: FDA-Public Use
  Company Number: US-CUBIST PHARMACEUTICAL, INC.-2013CBST000962

PATIENT
  Sex: 0

DRUGS (10)
  1. CUBICIN [Suspect]
     Indication: DEVICE RELATED INFECTION
     Dosage: 6 MG/KG, Q24H, DAY 4 TO 10
     Route: 065
  2. CUBICIN [Suspect]
     Indication: OFF LABEL USE
     Dosage: 8 MG/KG, Q24H, DAY 11 TO 17
     Route: 065
  3. CUBICIN [Suspect]
     Dosage: 12 MG/KG, Q24H, DAY 18 AND 19
     Route: 065
  4. ASPIRIN [Concomitant]
     Indication: PRODUCT USED FOR UNKNOWN INDICATION
     Dosage: UNK, UNK, UNK
     Route: 065
  5. FUROSEMIDE [Concomitant]
     Indication: PRODUCT USED FOR UNKNOWN INDICATION
     Dosage: UNK, UNK, UNK
     Route: 065
  6. CARVEDILOL [Concomitant]
     Indication: PRODUCT USED FOR UNKNOWN INDICATION
     Dosage: UNK, UNK, UNK
     Route: 065
  7. WARFARIN [Concomitant]
     Indication: PRODUCT USED FOR UNKNOWN INDICATION
     Dosage: UNK, UNK, UNK
     Route: 065
  8. LISINOPRIL [Concomitant]
     Indication: PRODUCT USED FOR UNKNOWN INDICATION
     Dosage: UNK, UNK, UNK
     Route: 065
  9. VANCOMYCIN [Concomitant]
     Indication: DEVICE RELATED INFECTION
     Dosage: 15 MG/KG, Q12H
     Route: 065
  10. TELAVANCIN [Concomitant]
     Indication: STAPHYLOCOCCAL INFECTION
     Dosage: UNK UNK, UNK
     Route: 065

REACTIONS (2)
  - Peritoneal haemorrhage [Fatal]
  - Staphylococcal bacteraemia [Recovered/Resolved]
